FAERS Safety Report 9244228 (Version 1)
Quarter: 2013Q1

REPORT INFORMATION
  Report Type: Spontaneous
  Country: US (occurrence: None)
  Receive Date: 20121123
  Receipt Date: 20121123
  Transmission Date: 20140127
  Serious: No
  Sender: FDA-Public Use
  Company Number: 361674

PATIENT
  Age: 75 Year
  Sex: Male

DRUGS (2)
  1. VICTOZA [Suspect]
     Indication: TYPE 2 DIABETES MELLITUS
     Dosage: UNK, SUBCUTANEOUS
     Route: 058
  2. NOVOLOG MIX 70/30 (INSULIN ASPART) SUSPENSION FOR INJECTION, 100 U/ML [Concomitant]

REACTIONS (2)
  - Weight decreased [None]
  - Decreased appetite [None]
